FAERS Safety Report 6748857-3 (Version None)
Quarter: 2010Q2

REPORT INFORMATION
  Report Type: 
  Country: None (occurrence: None)
  Receive Date: 20100601
  Receipt Date: 20100527
  Transmission Date: 20101027
  Serious: Yes (Death, Hospitalization)
  Sender: FDA-Public Use
  Company Number: PHHY2010EC34187

PATIENT
  Sex: Female

DRUGS (3)
  1. GLEEVEC [Suspect]
     Indication: CHRONIC MYELOID LEUKAEMIA
     Dosage: 400 MG DAILY
     Route: 048
     Dates: start: 20080314, end: 20100430
  2. CITARABINA [Suspect]
     Dosage: 10 MG, UNK
     Dates: start: 20100426, end: 20100430
  3. DOXORUBICIN HCL [Suspect]
     Dosage: 50 MG, QD
     Dates: start: 20100501, end: 20100503

REACTIONS (3)
  - BLAST CRISIS IN MYELOGENOUS LEUKAEMIA [None]
  - CEREBRAL HAEMORRHAGE [None]
  - PANCYTOPENIA [None]
